FAERS Safety Report 9219962 (Version 2)
Quarter: 2013Q2

REPORT INFORMATION
  Report Type: Report from Study
  Country: US (occurrence: US)
  Receive Date: 20130409
  Receipt Date: 20130422
  Transmission Date: 20140414
  Serious: Yes (Hospitalization)
  Sender: FDA-Public Use
  Company Number: US-ROCHE-1209649

PATIENT
  Age: 53 Year
  Sex: Female
  Weight: 94.43 kg

DRUGS (18)
  1. XOLAIR [Suspect]
     Indication: ASTHMA
     Route: 058
     Dates: start: 20100916, end: 20130301
  2. BENADRYL [Concomitant]
     Route: 048
     Dates: end: 20130302
  3. METFORMIN HYDROCHLORIDE [Concomitant]
     Route: 065
  4. MONTELUKAST [Concomitant]
     Route: 048
  5. ATROVENT [Concomitant]
     Route: 065
     Dates: end: 20130302
  6. FORADIL [Concomitant]
     Route: 050
  7. RANITIDINE [Concomitant]
  8. XYZAL [Concomitant]
  9. DETROL LA [Concomitant]
  10. SOMA (CARISOPRODOL) [Concomitant]
     Route: 048
  11. METHYLPREDNISOLONE [Concomitant]
     Route: 048
  12. ASPIRIN [Concomitant]
     Route: 065
  13. ATORVASTATIN [Concomitant]
  14. PERFOROMIST [Concomitant]
     Dosage: WHEN ATROVENT WAS NOT WORKING
     Route: 065
  15. MEDROL [Concomitant]
     Route: 065
     Dates: end: 20130302
  16. PEPCID [Concomitant]
     Route: 065
     Dates: end: 20130302
  17. FORMOTEROL [Concomitant]
     Route: 065
  18. SODIUM CHLORIDE [Concomitant]
     Route: 065

REACTIONS (5)
  - Arrhythmia [Unknown]
  - Dysarthria [Recovered/Resolved]
  - Palpitations [Recovered/Resolved]
  - Ataxia [Recovered/Resolved]
  - Hypersensitivity [Not Recovered/Not Resolved]
